FAERS Safety Report 11189560 (Version 2)
Quarter: 2015Q3

REPORT INFORMATION
  Report Type: Spontaneous
  Country: NL (occurrence: NL)
  Receive Date: 20150615
  Receipt Date: 20150729
  Transmission Date: 20151125
  Serious: Yes (Death, Hospitalization, Other)
  Sender: FDA-Public Use
  Company Number: NL-TOLMAR, INC.-2015NL005204

PATIENT
  Age: 86 Year
  Sex: Male

DRUGS (1)
  1. ELIGARD [Suspect]
     Active Substance: LEUPROLIDE ACETATE
     Indication: PROSTATE CANCER
     Dosage: 45 MG, ONCE EVERY 6 MONTH
     Route: 058
     Dates: start: 201311

REACTIONS (11)
  - Rectal cancer [Fatal]
  - Plasma cell myeloma [Fatal]
  - Abdominal pain [Unknown]
  - Rectal haemorrhage [Unknown]
  - Malaise [Unknown]
  - Liver disorder [Unknown]
  - Weight decreased [Unknown]
  - Drug ineffective [Unknown]
  - Diarrhoea [Unknown]
  - Metastases to liver [Unknown]
  - Hormone-refractory prostate cancer [Fatal]

NARRATIVE: CASE EVENT DATE: 201504
